FAERS Safety Report 10173127 (Version 1)
Quarter: 2014Q2

REPORT INFORMATION
  Report Type: Spontaneous
  Country: US (occurrence: None)
  Receive Date: 20140514
  Receipt Date: 20140514
  Transmission Date: 20141212
  Serious: No
  Sender: FDA-Public Use
  Company Number: None

PATIENT
  Age: 34 Year
  Sex: Female

DRUGS (1)
  1. CARBAMAZEPINE 200MG [Suspect]
     Indication: AFFECTIVE DISORDER
     Dosage: ONE AND ONE-HALF TABLETS, BID, ORAL
     Route: 048
     Dates: start: 20140314, end: 20140324

REACTIONS (5)
  - Constipation [None]
  - Insomnia [None]
  - Headache [None]
  - Body temperature increased [None]
  - Blood pressure increased [None]
